FAERS Safety Report 5871788-8 (Version None)
Quarter: 2008Q3

REPORT INFORMATION
  Report Type: 
  Country: None (occurrence: None)
  Receive Date: 20080905
  Receipt Date: 20080901
  Transmission Date: 20090109
  Serious: Yes (Death, Hospitalization)
  Sender: FDA-Public Use
  Company Number: CH-BRISTOL-MYERS SQUIBB COMPANY-14320147

PATIENT
  Age: 60 Year
  Sex: Male

DRUGS (13)
  1. ORENCIA [Suspect]
     Indication: POLYARTHRITIS
     Route: 042
     Dates: start: 20071127, end: 20080715
  2. ARAVA [Suspect]
  3. SPIRICORT [Suspect]
     Dosage: 1DF=15-20 MG
  4. MARCUMAR [Concomitant]
  5. NEXIUM [Concomitant]
  6. OXYCONTIN [Concomitant]
  7. TORSEMIDE [Concomitant]
  8. METOPROLOL TARTRATE [Concomitant]
  9. LISITRIL [Concomitant]
  10. VESICARE [Concomitant]
  11. FOSAVANCE [Concomitant]
  12. CIPRALEX [Concomitant]
  13. GYNO-TARDYFERON [Concomitant]

REACTIONS (4)
  - AZOTAEMIA [None]
  - DEATH [None]
  - HYPOTENSION [None]
  - RENAL FAILURE [None]
